FAERS Safety Report 7488246-X (Version None)
Quarter: 2011Q2

REPORT INFORMATION
  Report Type: 
  Country: None (occurrence: None)
  Receive Date: 20110518
  Receipt Date: 20110514
  Transmission Date: 20111010
  Serious: Yes (Death, Other)
  Sender: FDA-Public Use
  Company Number: PHHY2010MX31562

PATIENT
  Sex: Male

DRUGS (1)
  1. ZOMETA [Suspect]
     Dosage: 4 MG/5 ML PER 22 DAYS
     Route: 042
     Dates: start: 20080201

REACTIONS (8)
  - NEOPLASM MALIGNANT [None]
  - CARDIAC ARREST [None]
  - ARRHYTHMIA [None]
  - DEPRESSION [None]
  - DISEASE PROGRESSION [None]
  - CORONARY ARTERY OCCLUSION [None]
  - ANAEMIA [None]
  - APHAGIA [None]
